FAERS Safety Report 10685326 (Version 1)
Quarter: 2014Q4

REPORT INFORMATION
  Report Type: Spontaneous
  Country: US (occurrence: None)
  Receive Date: 20141229
  Receipt Date: 20141229
  Transmission Date: 20150529
  Serious: Yes (Other)
  Sender: FDA-Public Use
  Company Number: 2014-US-012077

PATIENT
  Age: 9 Year
  Sex: Male

DRUGS (6)
  1. ATIVAN [Concomitant]
     Active Substance: LORAZEPAM
  2. 6-MP (MERCAPTOPURINE) [Concomitant]
  3. DEXAMETHASONE. [Concomitant]
     Active Substance: DEXAMETHASONE
  4. ZOFRAN (ONDANSETRON) [Concomitant]
  5. EMEND (FOSAPREPITANT MEGLUMINE) [Concomitant]
  6. ERWINASE [Suspect]
     Active Substance: ASPARAGINASE ERWINIA CHRYSANTHEMI
     Indication: ACUTE LYMPHOCYTIC LEUKAEMIA
     Route: 030

REACTIONS (7)
  - Nausea [None]
  - Anaphylactic reaction [None]
  - Pain [None]
  - Anxiety [None]
  - Documented hypersensitivity to administered product [None]
  - Emotional distress [None]
  - Vomiting [None]
